FAERS Safety Report 8402111-2 (Version None)
Quarter: 2012Q2

REPORT INFORMATION
  Report Type: 
  Country: None (occurrence: None)
  Receive Date: 20120529
  Receipt Date: 20120515
  Transmission Date: 20120825
  Serious: Yes (Other)
  Sender: FDA-Public Use
  Company Number: 2012SP025803

PATIENT
  Age: 65 Year
  Sex: Female

DRUGS (8)
  1. FLUCONAZOLE (OTHER MFR) (FLUCONAZOLE) [Suspect]
     Indication: PRODUCT USED FOR UNKNOWN INDICATION
  2. IRON (IRON) [Suspect]
     Indication: PRODUCT USED FOR UNKNOWN INDICATION
  3. HYDROXYZINE [Suspect]
     Indication: PRODUCT USED FOR UNKNOWN INDICATION
  4. IODINE (IODINE) [Suspect]
     Indication: PRODUCT USED FOR UNKNOWN INDICATION
  5. DESLORATADINE [Suspect]
     Indication: PRODUCT USED FOR UNKNOWN INDICATION
  6. VANCOMYCIN [Suspect]
     Indication: PRODUCT USED FOR UNKNOWN INDICATION
  7. AMIKIN [Suspect]
     Indication: PRODUCT USED FOR UNKNOWN INDICATION
  8. BETA LACTAM (OTHER BETA-LACTAM ANTIBACTERIALS) [Suspect]

REACTIONS (1)
  - DRUG RASH WITH EOSINOPHILIA AND SYSTEMIC SYMPTOMS [None]
